FAERS Safety Report 18335111 (Version 1)
Quarter: 2020Q4

REPORT INFORMATION
  Report Type: Spontaneous
  Country: US (occurrence: US)
  Receive Date: 20201001
  Receipt Date: 20201001
  Transmission Date: 20210113
  Serious: No
  Sender: FDA-Public Use
  Company Number: US-MYLANLABS-2020M1077391

PATIENT
  Sex: Female
  Weight: 70 kg

DRUGS (2)
  1. WHISPERJECT? AUTOINJECTOR [Suspect]
     Active Substance: DEVICE
     Indication: RELAPSING MULTIPLE SCLEROSIS
  2. GLATIRAMER ACETATE INJECTION [Suspect]
     Active Substance: GLATIRAMER ACETATE
     Indication: RELAPSING MULTIPLE SCLEROSIS
     Dosage: 40 MILLIGRAM, 3XW
     Route: 058

REACTIONS (2)
  - Wrong device used [Recovered/Resolved]
  - Device use issue [Not Recovered/Not Resolved]
